FAERS Safety Report 8925388 (Version 5)
Quarter: 2013Q3

REPORT INFORMATION
  Report Type: Spontaneous
  Country: US (occurrence: US)
  Receive Date: 20121126
  Receipt Date: 20130702
  Transmission Date: 20140515
  Serious: No
  Sender: FDA-Public Use
  Company Number: US-PFIZER INC-2012294932

PATIENT
  Age: 58 Year
  Sex: Female
  Weight: 61.22 kg

DRUGS (4)
  1. ZOLOFT [Suspect]
     Indication: DEPRESSION
     Dosage: 50 MG, 1X/DAY
     Route: 048
  2. ZOLOFT [Suspect]
     Dosage: 50 MG, DAILY
     Route: 048
  3. ALLOPURINOL [Concomitant]
     Indication: NEPHROLITHIASIS
     Dosage: UNK, 3X/WEEK
  4. LORAZEPAM [Concomitant]
     Indication: INSOMNIA
     Dosage: 5 MG, DAILY

REACTIONS (4)
  - Drug ineffective [Unknown]
  - Nasopharyngitis [Unknown]
  - Stress [Unknown]
  - Tinnitus [Unknown]
